FAERS Safety Report 12677236 (Version 1)
Quarter: 2016Q3

REPORT INFORMATION
  Report Type: Spontaneous
  Country: US (occurrence: US)
  Receive Date: 20160823
  Receipt Date: 20160823
  Transmission Date: 20161109
  Serious: Yes (Death)
  Sender: FDA-Public Use
  Company Number: US-WEST-WARD PHARMACEUTICALS CORP.-US-H14001-16-00825

PATIENT
  Age: 59 Year
  Sex: Female
  Weight: 90.8 kg

DRUGS (7)
  1. HYDROMORPHONE [Suspect]
     Active Substance: HYDROMORPHONE
     Indication: PAIN
     Route: 065
     Dates: start: 20150220
  2. HYDROMORPHONE [Suspect]
     Active Substance: HYDROMORPHONE
     Route: 042
     Dates: start: 20150220
  3. LORAZEPAM. [Suspect]
     Active Substance: LORAZEPAM
     Indication: PAIN
     Route: 065
     Dates: start: 20150220
  4. LORAZEPAM. [Suspect]
     Active Substance: LORAZEPAM
     Route: 042
     Dates: start: 20150220
  5. SPIRONOLACTONE. [Concomitant]
     Active Substance: SPIRONOLACTONE
     Indication: PRODUCT USED FOR UNKNOWN INDICATION
     Route: 065
  6. LACTULOSE. [Concomitant]
     Active Substance: LACTULOSE
     Indication: PRODUCT USED FOR UNKNOWN INDICATION
     Route: 065
  7. HALDOL [Suspect]
     Active Substance: HALOPERIDOL
     Indication: PRODUCT USED FOR UNKNOWN INDICATION
     Route: 065
     Dates: start: 20150213

REACTIONS (4)
  - Respiratory arrest [Fatal]
  - Respiratory failure [Fatal]
  - Overdose [Fatal]
  - Cheyne-Stokes respiration [Fatal]

NARRATIVE: CASE EVENT DATE: 20150220
